FAERS Safety Report 7951134-6 (Version None)
Quarter: 2011Q4

REPORT INFORMATION
  Report Type: 
  Country: None (occurrence: None)
  Receive Date: 20111123
  Receipt Date: 20111115
  Transmission Date: 20120403
  Serious: Yes (Hospitalization, Disabling)
  Sender: FDA-Public Use
  Company Number: 2011SP023177

PATIENT
  Age: 26 Year
  Sex: Female
  Weight: 87.9978 kg

DRUGS (1)
  1. NUVARING [Suspect]
     Indication: CONTRACEPTION
     Dates: start: 20080424, end: 20090522

REACTIONS (19)
  - ATELECTASIS [None]
  - LUNG INFILTRATION [None]
  - PLASMINOGEN ACTIVATOR INHIBITOR INCREASED [None]
  - PULMONARY EMBOLISM [None]
  - ANTIPHOSPHOLIPID SYNDROME [None]
  - FIBRIN D DIMER INCREASED [None]
  - PLEURAL EFFUSION [None]
  - MENTAL DISORDER [None]
  - MIGRAINE [None]
  - LIMB INJURY [None]
  - HEPATIC STEATOSIS [None]
  - EMOTIONAL DISORDER [None]
  - IMPAIRED WORK ABILITY [None]
  - ARTHRALGIA [None]
  - LUNG CONSOLIDATION [None]
  - ANTINUCLEAR ANTIBODY POSITIVE [None]
  - WHITE BLOOD CELL COUNT INCREASED [None]
  - DIZZINESS [None]
  - CERUMEN IMPACTION [None]
